FAERS Safety Report 9397364 (Version 1)
Quarter: 2013Q3

REPORT INFORMATION
  Report Type: Spontaneous
  Country: FR (occurrence: FR)
  Receive Date: 20130712
  Receipt Date: 20130712
  Transmission Date: 20140515
  Serious: Yes (Life-Threatening)
  Sender: FDA-Public Use
  Company Number: FR-ABBOTT-13X-056-1117859-00

PATIENT
  Age: 48 Year
  Sex: Female

DRUGS (6)
  1. DEPAKOTE [Suspect]
     Indication: SUICIDE ATTEMPT
     Dosage: 90 DOSAGE FORM;ONCE
     Route: 048
     Dates: start: 20120908, end: 20120908
  2. VALIUM [Suspect]
     Indication: SUICIDE ATTEMPT
     Route: 048
     Dates: start: 20120908
  3. VALIUM [Suspect]
     Dosage: DAILY
     Route: 048
     Dates: start: 20120908
  4. ZYPREXA [Suspect]
     Indication: SUICIDE ATTEMPT
     Route: 048
     Dates: start: 20120908
  5. ZYPREXA [Suspect]
     Route: 048
     Dates: start: 20120908
  6. VALDOXAN [Concomitant]
     Indication: PRODUCT USED FOR UNKNOWN INDICATION
     Dates: start: 20120906, end: 20120908

REACTIONS (7)
  - Rhabdomyolysis [Recovered/Resolved]
  - Hyperammonaemia [Recovered/Resolved]
  - Pancytopenia [Recovered/Resolved]
  - Haemoglobin decreased [Unknown]
  - Platelet count decreased [Unknown]
  - White blood cell count decreased [Unknown]
  - Toxicity to various agents [Unknown]
